FAERS Safety Report 12668019 (Version 1)
Quarter: 2016Q3

REPORT INFORMATION
  Report Type: Spontaneous
  Country: FR (occurrence: FR)
  Receive Date: 20160819
  Receipt Date: 20160819
  Transmission Date: 20161109
  Serious: Yes (Life-Threatening, Hospitalization, Disabling)
  Sender: FDA-Public Use
  Company Number: FR-MYLANLABS-2016M1034479

PATIENT

DRUGS (2)
  1. KETOPROFEN MYLAN [Suspect]
     Active Substance: KETOPROFEN
     Indication: ANALGESIC THERAPY
     Dosage: 50 MG, Q6H
     Route: 042
     Dates: start: 20160514, end: 20160514
  2. KETOPROFEN MYLAN [Suspect]
     Active Substance: KETOPROFEN
     Dosage: 2 DF, QD
     Route: 048
     Dates: start: 20160515, end: 20160516

REACTIONS (4)
  - Hypotension [Unknown]
  - Duodenal ulcer perforation [Recovered/Resolved with Sequelae]
  - Anaemia [Recovering/Resolving]
  - Peritonitis [Recovered/Resolved]

NARRATIVE: CASE EVENT DATE: 20160522
